FAERS Safety Report 21228652 (Version 1)
Quarter: 2022Q3

REPORT INFORMATION
  Report Type: Spontaneous
  Country: US (occurrence: US)
  Receive Date: 20220818
  Receipt Date: 20220818
  Transmission Date: 20221027
  Serious: No
  Sender: FDA-Public Use
  Company Number: US-BRISTOL-MYERS SQUIBB COMPANY-2022-089771

PATIENT
  Sex: Male

DRUGS (1)
  1. ELIQUIS [Suspect]
     Active Substance: APIXABAN
     Indication: Pulmonary embolism
     Dosage: DOSE : 5MG;     FREQ : TWO 5MG TWICE DAILY FOR FIRST SEVEN DAYS THEN 1 TWICE DAILY
     Route: 048

REACTIONS (2)
  - Dizziness [Unknown]
  - Dizziness [Unknown]
